FAERS Safety Report 25275287 (Version 2)
Quarter: 2025Q4

REPORT INFORMATION
  Report Type: Spontaneous
  Country: US (occurrence: US)
  Receive Date: 20250506
  Receipt Date: 20251216
  Transmission Date: 20260118
  Serious: No
  Sender: VERTEX
  Company Number: US-VERTEX PHARMACEUTICALS-2025-006971

PATIENT

DRUGS (6)
  1. JOURNAVX [Suspect]
     Active Substance: SUZETRIGINE
     Indication: Pain
     Dosage: UNK (FIRST REGIMEN)
     Route: 061
  2. JOURNAVX [Suspect]
     Active Substance: SUZETRIGINE
     Indication: Complex regional pain syndrome
     Dosage: UNK (SECOND REGIMEN)
     Route: 061
  3. JOURNAVX [Suspect]
     Active Substance: SUZETRIGINE
     Indication: Systemic lupus erythematosus
  4. JOURNAVX [Suspect]
     Active Substance: SUZETRIGINE
     Indication: Autoimmune thyroiditis
  5. JOURNAVX [Suspect]
     Active Substance: SUZETRIGINE
     Indication: Chronic fatigue syndrome
  6. LEVORPHANOL [Concomitant]
     Active Substance: LEVORPHANOL
     Indication: Pain
     Dosage: UNK

REACTIONS (3)
  - Palpitations [Unknown]
  - Panic attack [Unknown]
  - Off label use [Unknown]
